FAERS Safety Report 24116741 (Version 1)
Quarter: 2024Q3

REPORT INFORMATION
  Report Type: Spontaneous
  Country: US (occurrence: US)
  Receive Date: 20240722
  Receipt Date: 20240722
  Transmission Date: 20241017
  Serious: No
  Sender: ASTELLAS
  Company Number: US-ASTELLAS-2023US032216

PATIENT
  Sex: Female

DRUGS (1)
  1. MYRBETRIQ [Suspect]
     Active Substance: MIRABEGRON
     Indication: Product used for unknown indication
     Dosage: 25 MG, OTHER (ONE OR TWO TABLETS A DAY)
     Route: 065
     Dates: start: 20231006

REACTIONS (2)
  - Urinary incontinence [Unknown]
  - Inappropriate schedule of product administration [Unknown]
